FAERS Safety Report 4646765-5 (Version None)
Quarter: 2005Q2

REPORT INFORMATION
  Report Type: 
  Country: None (occurrence: None)
  Receive Date: 20050425
  Receipt Date: 20050425
  Transmission Date: 20051028
  Serious: Yes (Hospitalization)
  Sender: FDA-Public Use
  Company Number: None

PATIENT
  Age: 71 Year
  Sex: Male
  Weight: 76.2043 kg

DRUGS (1)
  1. GLARGINE INSULIN [Suspect]
     Indication: DIABETES MELLITUS
     Dosage: 40U   QAM   SUBCUTANEO
     Route: 058
     Dates: start: 20050201, end: 20050223

REACTIONS (4)
  - DEHYDRATION [None]
  - DIZZINESS [None]
  - FALL [None]
  - HYPOGLYCAEMIA [None]
